FAERS Safety Report 5334605-0 (Version None)
Quarter: 2007Q2

REPORT INFORMATION
  Report Type: 
  Country: None (occurrence: None)
  Receive Date: 20070525
  Receipt Date: 20070524
  Transmission Date: 20071010
  Serious: Yes (Other)
  Sender: FDA-Public Use
  Company Number: GB-BRISTOL-MYERS SQUIBB COMPANY-13792106

PATIENT
  Age: 24 Year
  Sex: Male
  Weight: 108 kg

DRUGS (2)
  1. ETOPOSIDE [Suspect]
     Indication: TERATOMA OF TESTIS
     Route: 042
     Dates: start: 20070501, end: 20070503
  2. BLEOMYCIN [Concomitant]
     Indication: TERATOMA OF TESTIS
     Route: 030
     Dates: start: 20070501, end: 20070503

REACTIONS (1)
  - CHEST DISCOMFORT [None]
